FAERS Safety Report 6155882-2 (Version None)
Quarter: 2009Q2

REPORT INFORMATION
  Report Type: 
  Country: None (occurrence: None)
  Receive Date: 20090415
  Receipt Date: 20090409
  Transmission Date: 20091009
  Serious: Yes (Hospitalization)
  Sender: FDA-Public Use
  Company Number: PHHY2009JP13711

PATIENT

DRUGS (1)
  1. DIOVAN HCT [Suspect]
     Indication: HYPERTENSION
     Dosage: 80 MG/12.5 MG DAILY
     Route: 048
     Dates: start: 20090401

REACTIONS (3)
  - CARDIAC FAILURE [None]
  - DYSPNOEA [None]
  - NASOPHARYNGITIS [None]
